FAERS Safety Report 6257250-1 (Version None)
Quarter: 2009Q3

REPORT INFORMATION
  Report Type: 
  Country: None (occurrence: None)
  Receive Date: 20090706
  Receipt Date: 20090624
  Transmission Date: 20100115
  Serious: Yes (Life-Threatening, Hospitalization)
  Sender: FDA-Public Use
  Company Number: FR-PFIZER INC-2009231851

PATIENT
  Age: 62 Year

DRUGS (1)
  1. SUTENT [Suspect]
     Indication: PROSTATE CANCER
     Dosage: 37.5 MG, UNK
     Dates: start: 20080314, end: 20090512

REACTIONS (1)
  - ANAEMIA [None]
